FAERS Safety Report 24365514 (Version 2)
Quarter: 2024Q3

REPORT INFORMATION
  Report Type: Spontaneous
  Country: GB (occurrence: GB)
  Receive Date: 20240926
  Receipt Date: 20240927
  Transmission Date: 20241016
  Serious: Yes (Other)
  Sender: ABBVIE
  Company Number: None

PATIENT
  Age: 52 Year
  Sex: Female

DRUGS (1)
  1. ATOGEPANT [Suspect]
     Active Substance: ATOGEPANT
     Indication: Adverse drug reaction
     Dosage: 60MG AT NIGHT
     Route: 048

REACTIONS (1)
  - Eye naevus [Not Recovered/Not Resolved]

NARRATIVE: CASE EVENT DATE: 20240725
